FAERS Safety Report 7942000-0 (Version None)
Quarter: 2011Q4

REPORT INFORMATION
  Report Type: 
  Country: None (occurrence: None)
  Receive Date: 20111114
  Receipt Date: 20110624
  Transmission Date: 20120403
  Serious: Yes (Other)
  Sender: FDA-Public Use
  Company Number: 2011028197

PATIENT
  Age: 57 Year
  Sex: Female
  Weight: 68.0396 kg

DRUGS (23)
  1. HIZENTRA [Suspect]
     Indication: IMMUNODEFICIENCY COMMON VARIABLE
     Dosage: (8 G 1X/WEEK, INFUSED 40ML OVER 1 HOUR SUBCUTANEOUS), (SUBCUTANEOUS), (SUBCUTANEOUS)
     Route: 058
     Dates: start: 20110504
  2. HIZENTRA [Suspect]
     Indication: IMMUNODEFICIENCY COMMON VARIABLE
     Dosage: (8 G 1X/WEEK, INFUSED 40ML OVER 1 HOUR SUBCUTANEOUS), (SUBCUTANEOUS), (SUBCUTANEOUS)
     Route: 058
     Dates: start: 20110314
  3. HIZENTRA [Suspect]
     Indication: IMMUNODEFICIENCY COMMON VARIABLE
     Dosage: (8 G 1X/WEEK, INFUSED 40ML OVER 1 HOUR SUBCUTANEOUS), (SUBCUTANEOUS), (SUBCUTANEOUS)
     Route: 058
     Dates: start: 20110601
  4. ALLEGRA [Concomitant]
  5. ALBUTEROL [Concomitant]
  6. FELDENE [Concomitant]
  7. SINGULAIR [Concomitant]
  8. TOBRMYCIN (TOBRAMYCIN) [Concomitant]
  9. GLUCOSAMINE (GLUCOSAMINE) [Concomitant]
  10. HIZENTRA [Suspect]
  11. HIZENTRA [Suspect]
  12. ZOLOFT [Concomitant]
  13. PATANASE (OLOPATADINE) [Concomitant]
  14. FLOMAX [Concomitant]
  15. BUDESONIDE [Concomitant]
  16. TERBINAFINE HCL [Concomitant]
  17. FEXOFENADINE HCL [Concomitant]
  18. ACETAMINOPHEN [Concomitant]
  19. VITAMIN D [Concomitant]
  20. AMITRIPTYLINE HCL [Concomitant]
  21. OMEPRAZOLE [Concomitant]
  22. FLAXSEED OIL (LINUM USITATISSIMUM SEED OIL) [Concomitant]
  23. FISH OIL (FISH OIL) [Concomitant]

REACTIONS (8)
  - INFUSION SITE PAIN [None]
  - INFUSION SITE URTICARIA [None]
  - SINUSITIS [None]
  - INFUSION SITE SWELLING [None]
  - INFUSION SITE HAEMATOMA [None]
  - INFUSION SITE RASH [None]
  - INFUSION SITE ERYTHEMA [None]
  - INFUSION [None]
